FAERS Safety Report 6001640-9 (Version None)
Quarter: 2008Q4

REPORT INFORMATION
  Report Type: 
  Country: None (occurrence: None)
  Receive Date: 20081215
  Receipt Date: 20080407
  Transmission Date: 20090506
  Serious: No
  Sender: FDA-Public Use
  Company Number: US-AMGEN-KDL273419

PATIENT
  Sex: Male

DRUGS (3)
  1. ENBREL [Suspect]
     Indication: RHEUMATOID ARTHRITIS
     Route: 058
     Dates: start: 20080331
  2. ENBREL [Suspect]
     Indication: JUVENILE ARTHRITIS
  3. METHOTREXATE [Concomitant]
     Route: 048

REACTIONS (1)
  - WEIGHT INCREASED [None]
